FAERS Safety Report 7508782-7 (Version None)
Quarter: 2011Q2

REPORT INFORMATION
  Report Type: 
  Country: None (occurrence: None)
  Receive Date: 20110527
  Receipt Date: 20110211
  Transmission Date: 20111010
  Serious: No
  Sender: FDA-Public Use
  Company Number: A0913853A

PATIENT
  Sex: Female

DRUGS (1)
  1. VENTOLIN HFA [Suspect]
     Indication: ASTHMA
     Route: 055
     Dates: start: 20110211

REACTIONS (4)
  - PANIC ATTACK [None]
  - DYSPNOEA [None]
  - WHEEZING [None]
  - PRODUCTIVE COUGH [None]
